FAERS Safety Report 17457032 (Version 3)
Quarter: 2021Q1

REPORT INFORMATION
  Report Type: Spontaneous
  Country: US (occurrence: US)
  Receive Date: 20200225
  Receipt Date: 20210209
  Transmission Date: 20210419
  Serious: No
  Sender: FDA-Public Use
  Company Number: US-SA-2020SA048438

PATIENT
  Age: 56 Year
  Sex: Female
  Weight: 77.1 kg

DRUGS (33)
  1. XIIDRA [Concomitant]
     Active Substance: LIFITEGRAST
  2. BENZONATATE. [Concomitant]
     Active Substance: BENZONATATE
  3. DOXYCYCLINE HYCLATE. [Concomitant]
     Active Substance: DOXYCYCLINE HYCLATE
  4. VITAMIN D [VITAMIN D NOS] [Concomitant]
     Active Substance: VITAMIN D NOS
  5. DUPIXENT [Suspect]
     Active Substance: DUPILUMAB
     Indication: IMMUNODEFICIENCY
     Dosage: 300 MG, QOW
     Route: 058
     Dates: start: 20210127
  6. LIPITOR [Concomitant]
     Active Substance: ATORVASTATIN CALCIUM
  7. PROAIR HFA [Concomitant]
     Active Substance: ALBUTEROL SULFATE
     Dosage: PROAIR HFA 90 MCG HFA AER AD
  8. VITAMIN B?1 [Concomitant]
     Active Substance: THIAMINE HYDROCHLORIDE
  9. LIDOCAINE/PRILOCAINE [Concomitant]
     Active Substance: LIDOCAINE\PRILOCAINE
  10. CLARITIN [CLARITHROMYCIN] [Concomitant]
     Active Substance: CLARITHROMYCIN
  11. VITAMIN C [Concomitant]
     Active Substance: ASCORBIC ACID
  12. VITAMIN B NOS [Concomitant]
     Active Substance: VITAMIN B
  13. DIPHENHYDRAMINE. [Concomitant]
     Active Substance: DIPHENHYDRAMINE
  14. HIZENTRA [Concomitant]
     Active Substance: HUMAN IMMUNOGLOBULIN G
     Dosage: UNK
  15. ROBITUSSIN COUGH AND CHEST CONGESTION DM [Concomitant]
     Active Substance: DEXTROMETHORPHAN HYDROBROMIDE\GUAIFENESIN
     Dosage: UNK
  16. PREDNISONE. [Concomitant]
     Active Substance: PREDNISONE
     Dosage: UNK
  17. ZYRTEC [Concomitant]
     Active Substance: CETIRIZINE HYDROCHLORIDE
  18. VITAMIN B COMPLEX [Concomitant]
     Active Substance: CYANOCOBALAMIN\DEXPANTHENOL\NIACINAMIDE\PYRIDOXINE HYDROCHLORIDE\RIBOFLAVIN 5^-PHOSPHATE SODIUM\THIAMINE HYDROCHLORIDE\VITAMIN B COMPLEX
     Dosage: UNK
  19. DUPIXENT [Suspect]
     Active Substance: DUPILUMAB
     Indication: ASTHMA
  20. EPINEPHRINE [EPINEPHRINE HYDROCHLORIDE] [Concomitant]
     Dosage: UNK, AUTO?INJECTOR
  21. LEVAQUIN [Concomitant]
     Active Substance: LEVOFLOXACIN
  22. BREO ELLIPTA [Concomitant]
     Active Substance: FLUTICASONE FUROATE\VILANTEROL TRIFENATATE
     Dosage: 200?25MCG BLST W/DEV
  23. DUPIXENT [Suspect]
     Active Substance: DUPILUMAB
     Indication: ASTHMA
     Dosage: 300 MG, QOW
     Route: 058
     Dates: start: 201911
  24. ACETAMINOPHEN. [Concomitant]
     Active Substance: ACETAMINOPHEN
  25. VITAMIN D3 [Concomitant]
     Active Substance: CHOLECALCIFEROL
  26. QNASL [Concomitant]
     Active Substance: BECLOMETHASONE DIPROPIONATE
     Dosage: QNASL 80 MCG HFA AER AD
  27. MUCINEX [Concomitant]
     Active Substance: GUAIFENESIN
     Dosage: UNK UNK, BID, MUCINEX 600 MG TAB ER 12H
  28. ZOFRAN [Concomitant]
     Active Substance: ONDANSETRON HYDROCHLORIDE
  29. LIDOCAINE. [Concomitant]
     Active Substance: LIDOCAINE
  30. BENADRYL [Concomitant]
     Active Substance: DIPHENHYDRAMINE HYDROCHLORIDE
  31. CALCIUM [Concomitant]
     Active Substance: CALCIUM
  32. CAFFEINE. [Concomitant]
     Active Substance: CAFFEINE
  33. MULTIVITAMINS [VITAMINS NOS] [Concomitant]
     Active Substance: VITAMINS

REACTIONS (5)
  - Product use in unapproved indication [Unknown]
  - Product use issue [Unknown]
  - Pain in extremity [Not Recovered/Not Resolved]
  - Lung operation [Unknown]
  - Illness [Unknown]

NARRATIVE: CASE EVENT DATE: 201911
